FAERS Safety Report 12580726 (Version 4)
Quarter: 2016Q4

REPORT INFORMATION
  Report Type: Report from Study
  Country: SV (occurrence: SV)
  Receive Date: 20160721
  Receipt Date: 20161009
  Transmission Date: 20170207
  Serious: Yes (Death, Life-Threatening, Other)
  Sender: FDA-Public Use
  Company Number: PHHY2016SV099454

PATIENT
  Age: 48 Year
  Sex: Male
  Weight: 55 kg

DRUGS (1)
  1. GLIVEC [Suspect]
     Active Substance: IMATINIB MESYLATE
     Indication: CHRONIC MYELOID LEUKAEMIA
     Dosage: 400 MG, QD
     Route: 065
     Dates: start: 20131002, end: 20160530

REACTIONS (13)
  - Septic shock [Fatal]
  - Platelet count decreased [Unknown]
  - White blood cell count decreased [Unknown]
  - Hypotension [Fatal]
  - Neurological decompensation [Fatal]
  - Acute lymphocytic leukaemia [Unknown]
  - Malaise [Unknown]
  - Haemoglobin decreased [Unknown]
  - Blast cells present [Unknown]
  - Gastroenteritis [Fatal]
  - Diarrhoea [Fatal]
  - Chronic myeloid leukaemia transformation [Unknown]
  - Neutrophil count decreased [Unknown]

NARRATIVE: CASE EVENT DATE: 20160522
